FAERS Safety Report 25953074 (Version 2)
Quarter: 2025Q4

REPORT INFORMATION
  Report Type: Spontaneous
  Country: GB (occurrence: GB)
  Receive Date: 20251023
  Receipt Date: 20251028
  Transmission Date: 20260118
  Serious: Yes (Life-Threatening, Hospitalization, Disabling, Other)
  Sender: FERRING
  Company Number: None

PATIENT

DRUGS (2)
  1. DINOPROSTONE [Suspect]
     Active Substance: DINOPROSTONE
     Indication: Induced labour
     Dosage: 10 MG
     Route: 067
     Dates: start: 20210126
  2. TERBUTALINE [Concomitant]
     Active Substance: TERBUTALINE
     Indication: Product used for unknown indication
     Route: 065

REACTIONS (12)
  - Uterine hyperstimulation [Not Recovered/Not Resolved]
  - Near death experience [Unknown]
  - Fibrin D dimer increased [Unknown]
  - Uterine contractions abnormal [Not Recovered/Not Resolved]
  - Infertility female [Unknown]
  - Uterine rupture [Unknown]
  - Pain [Not Recovered/Not Resolved]
  - Uterine mass [Unknown]
  - Uterine scar [Unknown]
  - Infection [Unknown]
  - Drug monitoring procedure not performed [Unknown]
  - Maternal exposure during pregnancy [Unknown]

NARRATIVE: CASE EVENT DATE: 20210127
